FAERS Safety Report 5417766-4 (Version None)
Quarter: 2007Q3

REPORT INFORMATION
  Report Type: 
  Country: None (occurrence: None)
  Receive Date: 20070815
  Receipt Date: 20070815
  Transmission Date: 20080115
  Serious: Yes (Hospitalization)
  Sender: FDA-Public Use
  Company Number: None

PATIENT
  Sex: Female
  Weight: 54.4316 kg

DRUGS (7)
  1. CIPRO [Suspect]
     Indication: ANTI-INFECTIVE THERAPY
     Dosage: PO
     Route: 048
     Dates: start: 20061007
  2. XANAX [Concomitant]
  3. ASPIRIN [Concomitant]
  4. ZOLOFT [Concomitant]
  5. ENTEX CAP [Concomitant]
  6. ZYRTEC [Concomitant]
  7. DEPO-PROVERA [Concomitant]

REACTIONS (4)
  - ERYTHEMA [None]
  - RASH GENERALISED [None]
  - RASH PRURITIC [None]
  - URTICARIA [None]
